FAERS Safety Report 13014332 (Version 1)
Quarter: 2016Q4

REPORT INFORMATION
  Report Type: Spontaneous
  Country: US (occurrence: US)
  Receive Date: 20161209
  Receipt Date: 20161209
  Transmission Date: 20170207
  Serious: Yes (Hospitalization, Other)
  Sender: FDA-Public Use
  Company Number: US-TEVA-719284USA

PATIENT
  Sex: Female

DRUGS (21)
  1. DETROL [Concomitant]
     Active Substance: TOLTERODINE TARTRATE
  2. SONATA [Concomitant]
     Active Substance: ZALEPLON
  3. DOXEPIN [Concomitant]
     Active Substance: DOXEPIN
  4. ROBAXIN [Concomitant]
     Active Substance: METHOCARBAMOL
  5. VIIBRYD [Concomitant]
     Active Substance: VILAZODONE HYDROCHLORIDE
  6. COPAXONE [Suspect]
     Active Substance: GLATIRAMER ACETATE
     Indication: MULTIPLE SCLEROSIS
     Route: 058
     Dates: start: 20150414
  7. LIPITOR [Concomitant]
     Active Substance: ATORVASTATIN CALCIUM
  8. NORVASC [Concomitant]
     Active Substance: AMLODIPINE BESYLATE
  9. VALTREX [Concomitant]
     Active Substance: VALACYCLOVIR HYDROCHLORIDE
  10. ADVAIR HFA [Concomitant]
     Active Substance: FLUTICASONE PROPIONATE\SALMETEROL XINAFOATE
  11. FIORICET [Concomitant]
     Active Substance: ACETAMINOPHEN\BUTALBITAL\CAFFEINE
  12. ANTIVERT [Concomitant]
     Active Substance: MECLIZINE HYDROCHLORIDE
  13. GILENYA [Concomitant]
     Active Substance: FINGOLIMOD HYDROCHLORIDE
  14. NUVIGIL [Concomitant]
     Active Substance: ARMODAFINIL
  15. PRILOSEC [Concomitant]
     Active Substance: OMEPRAZOLE MAGNESIUM
  16. PROPRANOLOL [Concomitant]
     Active Substance: PROPRANOLOL\PROPRANOLOL HYDROCHLORIDE
  17. LIBRAX [Concomitant]
     Active Substance: CHLORDIAZEPOXIDE HYDROCHLORIDE\CLIDINIUM BROMIDE
  18. LISINOPRIL. [Concomitant]
     Active Substance: LISINOPRIL
  19. NEURONTIN [Concomitant]
     Active Substance: GABAPENTIN
  20. SPRIX [Concomitant]
     Active Substance: KETOROLAC TROMETHAMINE
  21. TRAZODONE [Concomitant]
     Active Substance: TRAZODONE HYDROCHLORIDE

REACTIONS (1)
  - Multiple sclerosis relapse [Not Recovered/Not Resolved]

NARRATIVE: CASE EVENT DATE: 2016
